FAERS Safety Report 8231304 (Version 2)
Quarter: 2012Q4

REPORT INFORMATION
  Report Type: 
  Country: US (occurrence: US)
  Receive Date: 20111106
  Receipt Date: 20121023
  Transmission Date: 20130627
  Serious: Yes (Other)
  Sender: FDA-Public Use
  Company Number: US-AMGEN-USASP2011035352

PATIENT
  Age: 51 Year
  Sex: Male
  Weight: 93 kg

DRUGS (7)
  1. ENBREL [Suspect]
     Indication: PSORIASIS
     Dosage: 50 mg, 2 times/wk
     Dates: start: 20070101
  2. SIMVASTATIN [Concomitant]
     Dosage: 40 mg, qd
  3. TRICOR                             /00499301/ [Concomitant]
     Dosage: 145 mg, qd
  4. LISINOPRIL [Concomitant]
     Dosage: 20 mg, qd
  5. NEXIUM                             /01479302/ [Concomitant]
     Dosage: 40 mg, qd
  6. METOPROLOL [Concomitant]
     Dosage: 100 mg, qd
  7. LIALDA [Concomitant]
     Dosage: 1.2 g, q12h

REACTIONS (1)
  - Basal cell carcinoma [Recovered/Resolved]
